FAERS Safety Report 4836828-3 (Version None)
Quarter: 2005Q4

REPORT INFORMATION
  Report Type: 
  Country: None (occurrence: None)
  Receive Date: 20051121
  Receipt Date: 20051110
  Transmission Date: 20060501
  Serious: Yes (Hospitalization)
  Sender: FDA-Public Use
  Company Number: DEU-2005-0001745

PATIENT
  Sex: Female

DRUGS (2)
  1. OXYCODONE HCL [Suspect]
     Indication: BACK PAIN
     Dosage: ORAL
     Route: 048
  2. CLINDAMYCIN [Suspect]
     Dosage: SEE IMAGE

REACTIONS (2)
  - ERYTHEMA [None]
  - RASH PAPULAR [None]
